FAERS Safety Report 9640795 (Version 1)
Quarter: 2013Q4

REPORT INFORMATION
  Report Type: Spontaneous
  Country: US (occurrence: None)
  Receive Date: 20131021
  Receipt Date: 20131021
  Transmission Date: 20140711
  Serious: Yes (Other)
  Sender: FDA-Public Use
  Company Number: 1254197

PATIENT
  Age: 55 Year
  Sex: Female
  Weight: 90.72 kg

DRUGS (2)
  1. NOSTRILLA [Suspect]
     Dosage: SPRAYED NASALLY NOS
  2. ARMOUR THYROID [Concomitant]

REACTIONS (3)
  - Nasal discomfort [None]
  - Drug dependence [None]
  - Treatment noncompliance [None]
